FAERS Safety Report 25529053 (Version 1)
Quarter: 2025Q3

REPORT INFORMATION
  Report Type: Spontaneous
  Country: US (occurrence: US)
  Receive Date: 20250708
  Receipt Date: 20250708
  Transmission Date: 20251021
  Serious: No
  Sender: GUERBET
  Company Number: US-GUERBET / LLC-US-20250083

PATIENT
  Age: 29 Year
  Sex: Female

DRUGS (1)
  1. DOTAREM [Suspect]
     Active Substance: GADOTERATE MEGLUMINE
     Indication: Breast scan
     Dates: start: 20250424, end: 20250424

REACTIONS (5)
  - Urticaria [Unknown]
  - Oral pruritus [Unknown]
  - Throat irritation [Unknown]
  - Dyspnoea [Unknown]
  - Off label use [Unknown]

NARRATIVE: CASE EVENT DATE: 20250424
